FAERS Safety Report 24570910 (Version 1)
Quarter: 2024Q4

REPORT INFORMATION
  Report Type: Spontaneous
  Country: CA (occurrence: CA)
  Receive Date: 20241101
  Receipt Date: 20241101
  Transmission Date: 20250114
  Serious: Yes (Hospitalization, Other)
  Sender: CELLTRION
  Company Number: CA-PFIZER INC-202400287103

PATIENT

DRUGS (3)
  1. INFLECTRA [Suspect]
     Active Substance: INFLIXIMAB-DYYB
     Indication: Colitis ulcerative
     Dosage: 400 MG, EVERY 6 WEEK
     Route: 042
     Dates: start: 20240911
  2. INFLECTRA [Suspect]
     Active Substance: INFLIXIMAB-DYYB
     Dosage: 400 MG (EVERY 6 WEEK)
     Route: 042
     Dates: start: 20241023
  3. PREDNISONE [Concomitant]
     Active Substance: PREDNISONE
     Dosage: UNK

REACTIONS (1)
  - Cataract [Recovered/Resolved with Sequelae]

NARRATIVE: CASE EVENT DATE: 20240101
